FAERS Safety Report 9225618 (Version 1)
Quarter: 2013Q1

REPORT INFORMATION
  Report Type: Spontaneous
  Country: US (occurrence: None)
  Receive Date: 20120912
  Receipt Date: 20120912
  Transmission Date: 20140127
  Serious: No
  Sender: FDA-Public Use
  Company Number: 2012SP031088

PATIENT
  Age: 50 Year
  Sex: Male

DRUGS (3)
  1. SAPHRIS [Suspect]
     Indication: BIPOLAR DISORDER
     Route: 060
     Dates: start: 2012, end: 20120604
  2. LAMICTAL [Concomitant]
  3. LEXAPRO [Concomitant]

REACTIONS (1)
  - Aphthous stomatitis [None]
